FAERS Safety Report 16325405 (Version 1)
Quarter: 2019Q2

REPORT INFORMATION
  Report Type: Spontaneous
  Country: US (occurrence: US)
  Receive Date: 20190517
  Receipt Date: 20190517
  Transmission Date: 20190711
  Serious: Yes (Other)
  Sender: FDA-Public Use
  Company Number: PHEH2019US020973

PATIENT
  Age: 5 Year
  Sex: Male

DRUGS (1)
  1. AFINITOR [Suspect]
     Active Substance: EVEROLIMUS
     Indication: OPTIC GLIOMA
     Dosage: UNK
     Route: 065
     Dates: start: 20180524

REACTIONS (4)
  - Optic glioma [Unknown]
  - Drug level decreased [Unknown]
  - Malignant neoplasm progression [Unknown]
  - Product use in unapproved indication [Unknown]
